FAERS Safety Report 8484398-3 (Version None)
Quarter: 2012Q3

REPORT INFORMATION
  Report Type: 
  Country: None (occurrence: None)
  Receive Date: 20120703
  Receipt Date: 20120628
  Transmission Date: 20120928
  Serious: Yes (Other)
  Sender: FDA-Public Use
  Company Number: PHHY2012NL043000

PATIENT
  Sex: Male

DRUGS (4)
  1. ZOMETA [Suspect]
     Dosage: 4MG/100ML SOLUTION FOR IV INFUSION (PERIPHERAL 320ML/H) ONCE PER 42 DAYS
     Dates: start: 20120628
  2. ZOMETA [Suspect]
     Dosage: 4MG/100ML SOLUTION FOR IV INFUSION (PERIPHERAL 4MG/100ML) ONCE PER 42 DAYS
     Dates: start: 20120405
  3. ZOMETA [Suspect]
     Dosage: 4MG/100ML SOLUTION FOR IV INFUSION (PERIPHERAL 4MG/100ML) ONCE PER 42 DAYS
     Dates: start: 20120516
  4. ZOMETA [Suspect]
     Indication: RENAL CELL CARCINOMA
     Dosage: 4MG/100ML SOLUTION FOR IV INFUSION (PERIPHERAL 4MG/100ML) ONCE PER 42 DAYS
     Dates: start: 20080702

REACTIONS (7)
  - DECREASED APPETITE [None]
  - PALLOR [None]
  - HAEMOPTYSIS [None]
  - FATIGUE [None]
  - COUGH [None]
  - ASTHENIA [None]
  - MALAISE [None]
